FAERS Safety Report 18047521 (Version 1)
Quarter: 2020Q3

REPORT INFORMATION
  Report Type: Spontaneous
  Country: US (occurrence: US)
  Receive Date: 20200720
  Receipt Date: 20200720
  Transmission Date: 20201103
  Serious: No
  Sender: FDA-Public Use
  Company Number: None

PATIENT
  Age: 62 Year
  Sex: Male

DRUGS (1)
  1. ABIRATERONE TAB 250MG [Suspect]
     Active Substance: ABIRATERONE
     Indication: PROSTATE CANCER
     Route: 048
     Dates: start: 202004, end: 202007

REACTIONS (1)
  - Drug ineffective [None]

NARRATIVE: CASE EVENT DATE: 20200720
